FAERS Safety Report 8546741-6 (Version None)
Quarter: 2012Q3

REPORT INFORMATION
  Report Type: 
  Country: None (occurrence: None)
  Receive Date: 20120727
  Receipt Date: 20120202
  Transmission Date: 20120928
  Serious: No
  Sender: FDA-Public Use
  Company Number: US-ASTRAZENECA-2012SE07263

PATIENT
  Age: 34 Year
  Sex: Male
  Weight: 127 kg

DRUGS (4)
  1. ATIVAN [Concomitant]
  2. LITHIUM CARBONATE [Concomitant]
  3. SEROQUEL XR [Suspect]
     Indication: BIPOLAR DISORDER
     Route: 048
  4. PAXIL [Concomitant]

REACTIONS (10)
  - FEELING ABNORMAL [None]
  - HOT FLUSH [None]
  - FEELING COLD [None]
  - INSOMNIA [None]
  - ANXIETY [None]
  - COLD SWEAT [None]
  - PANIC ATTACK [None]
  - DRUG DOSE OMISSION [None]
  - WITHDRAWAL SYNDROME [None]
  - NERVOUSNESS [None]
